FAERS Safety Report 25429784 (Version 2)
Quarter: 2025Q2

REPORT INFORMATION
  Report Type: Spontaneous
  Country: US (occurrence: US)
  Receive Date: 20250612
  Receipt Date: 20250624
  Transmission Date: 20250717
  Serious: Yes (Other)
  Sender: JOHNSON AND JOHNSON
  Company Number: US-JNJFOC-20250607092

PATIENT
  Sex: Female

DRUGS (3)
  1. XARELTO [Suspect]
     Active Substance: RIVAROXABAN
     Indication: Pulmonary embolism
     Route: 048
     Dates: start: 20160413, end: 20160514
  2. NORTRIPTYLINE [Concomitant]
     Active Substance: NORTRIPTYLINE
     Indication: Product used for unknown indication
  3. LISINOPRIL [Concomitant]
     Active Substance: LISINOPRIL
     Indication: Hypertension
     Dates: start: 2016, end: 2017

REACTIONS (6)
  - Neuropathy peripheral [Not Recovered/Not Resolved]
  - Enteric neuropathy [Not Recovered/Not Resolved]
  - Weight increased [Unknown]
  - Brain fog [Unknown]
  - Dry mouth [Unknown]
  - Balance disorder [Unknown]
